FAERS Safety Report 10627620 (Version 1)
Quarter: 2014Q4

REPORT INFORMATION
  Report Type: Spontaneous
  Country: US (occurrence: US)
  Receive Date: 20141205
  Receipt Date: 20141205
  Transmission Date: 20150529
  Serious: Yes (Life-Threatening, Hospitalization, Other)
  Sender: FDA-Public Use
  Company Number: US-009507513-1412USA000571

PATIENT
  Age: 62 Year
  Sex: Female

DRUGS (2)
  1. BORTEZOMIB (+) CYCLOPHOSPHAMIDE (+) DEXAMETHASONE [Concomitant]
     Indication: CHEMOTHERAPY
     Dosage: CYCLOPHOSPHAMIDE (500 MG), DEXAMETHASONE (40 MG), AND BORTEZOMIB(2.4 MG INTRAVENOUSLY)
  2. AMITRIPTYLINE HYDROCHLORIDE. [Suspect]
     Active Substance: AMITRIPTYLINE HYDROCHLORIDE
     Indication: NEUROPATHY PERIPHERAL
     Dosage: 25 MG, QD

REACTIONS (1)
  - Agranulocytosis [Recovering/Resolving]
